FAERS Safety Report 24984122 (Version 1)
Quarter: 2025Q1

REPORT INFORMATION
  Report Type: Spontaneous
  Country: US (occurrence: US)
  Receive Date: 20250219
  Receipt Date: 20250219
  Transmission Date: 20250408
  Serious: No
  Sender: BAXTER
  Company Number: US-BAXTER-2025BAX011420

PATIENT
  Age: 51 Year
  Sex: Male

DRUGS (2)
  1. HEPARIN SODIUM [Suspect]
     Active Substance: HEPARIN SODIUM
     Indication: Surgery
     Route: 042
     Dates: start: 20250131, end: 20250131
  2. HEPARIN SODIUM [Suspect]
     Active Substance: HEPARIN SODIUM
     Route: 042
     Dates: start: 20250131, end: 20250131

REACTIONS (1)
  - Vascular access site haemorrhage [Recovered/Resolved]

NARRATIVE: CASE EVENT DATE: 20250131
